FAERS Safety Report 9621451 (Version 2)
Quarter: 2014Q1

REPORT INFORMATION
  Report Type: Spontaneous
  Country: US (occurrence: US)
  Receive Date: 20131015
  Receipt Date: 20140203
  Transmission Date: 20141002
  Serious: Yes (Other)
  Sender: FDA-Public Use
  Company Number: US-BAYER-2013-124254

PATIENT
  Age: 28 Year
  Sex: Female
  Weight: 62.59 kg

DRUGS (1)
  1. MIRENA [Suspect]
     Indication: CONTRACEPTION
     Dosage: 20 MCG/24HR, CONT
     Route: 015
     Dates: start: 20090414, end: 20120114

REACTIONS (5)
  - Uterine perforation [None]
  - Device dislocation [None]
  - Injury [None]
  - Pain [None]
  - Emotional distress [None]
